FAERS Safety Report 6501726-6 (Version None)
Quarter: 2009Q4

REPORT INFORMATION
  Report Type: 
  Country: None (occurrence: None)
  Receive Date: 20091209
  Receipt Date: 20091203
  Transmission Date: 20100525
  Serious: Yes (Other)
  Sender: FDA-Public Use
  Company Number: A0782907A

PATIENT
  Age: 61 Year
  Sex: Female
  Weight: 53.4791 kg

DRUGS (1)
  1. UREA PEROXIDE [Suspect]
     Dosage: AURAL
     Route: 001

REACTIONS (15)
  - ANXIETY [None]
  - DEAFNESS [None]
  - DEPRESSION [None]
  - DIZZINESS [None]
  - EAR DISCOMFORT [None]
  - EAR DISORDER [None]
  - EAR PAIN [None]
  - EPISTAXIS [None]
  - NERVOUSNESS [None]
  - OPEN WOUND [None]
  - OTITIS MEDIA [None]
  - RHINITIS ALLERGIC [None]
  - SOMNOLENCE [None]
  - TINNITUS [None]
  - TYMPANIC MEMBRANE PERFORATION [None]
